FAERS Safety Report 5092888-9 (Version None)
Quarter: 2006Q3

REPORT INFORMATION
  Report Type: 
  Country: None (occurrence: None)
  Receive Date: 20060828
  Receipt Date: 20060818
  Transmission Date: 20061208
  Serious: Yes (Other)
  Sender: FDA-Public Use
  Company Number: 2006098511

PATIENT
  Age: 41 Year
  Sex: Female

DRUGS (3)
  1. SUDAFED 12 HOUR [Suspect]
     Indication: HYPERSENSITIVITY
     Dosage: 1 PILL AS NEEDED; 3 PILLS AT MOST DAILY, ORAL
     Route: 048
  2. DRUG, UNSPECIFIED (DRUG, UNSPECIFIED) [Suspect]
     Indication: THYROID DISORDER
  3. VITAMINS [Concomitant]

REACTIONS (4)
  - DEPRESSION [None]
  - FEELING ABNORMAL [None]
  - SINUS DISORDER [None]
  - SUICIDAL IDEATION [None]
